FAERS Safety Report 4336108-9 (Version None)
Quarter: 2004Q2

REPORT INFORMATION
  Report Type: 
  Country: None (occurrence: None)
  Receive Date: 20040407
  Receipt Date: 20040312
  Transmission Date: 20050107
  Serious: No
  Sender: FDA-Public Use
  Company Number: 7739

PATIENT
  Age: 17 Year
  Sex: Female

DRUGS (2)
  1. METHOTREXATE [Suspect]
  2. ACTINOMYCIN D [Suspect]

REACTIONS (7)
  - HEPATIC ENZYME INCREASED [None]
  - MALAISE [None]
  - OPTIC NEUROPATHY [None]
  - PHARYNGITIS [None]
  - STOMATITIS [None]
  - VISUAL ACUITY REDUCED [None]
  - VITREOUS FLOATERS [None]
